FAERS Safety Report 14679917 (Version 1)
Quarter: 2018Q1

REPORT INFORMATION
  Report Type: Spontaneous
  Country: AU (occurrence: AU)
  Receive Date: 20180326
  Receipt Date: 20180326
  Transmission Date: 20180509
  Serious: Yes (Other)
  Sender: FDA-Public Use
  Company Number: AU-009507513-1803AUS008053

PATIENT
  Age: 58 Year
  Sex: Male

DRUGS (1)
  1. GRAZOPREVIR (+) ELBASVIR [Suspect]
     Active Substance: ELBASVIR\GRAZOPREVIR
     Dosage: DOSE UNSPECIFIED, DAILY, FORMULATION: CAPSULE
     Route: 048
     Dates: start: 20170622, end: 20170710

REACTIONS (2)
  - Diarrhoea [Unknown]
  - Angioedema [Unknown]

NARRATIVE: CASE EVENT DATE: 20170707
